FAERS Safety Report 8037051-4 (Version None)
Quarter: 2012Q1

REPORT INFORMATION
  Report Type: 
  Country: None (occurrence: None)
  Receive Date: 20120111
  Receipt Date: 20120104
  Transmission Date: 20120608
  Serious: Yes (Hospitalization)
  Sender: FDA-Public Use
  Company Number: US-GLAXOSMITHKLINE-A0899751A

PATIENT
  Age: 60 Year
  Sex: Male
  Weight: 75 kg

DRUGS (2)
  1. AVANDIA [Suspect]
     Indication: DIABETES MELLITUS
     Dosage: 4MG TWICE PER DAY
     Route: 048
     Dates: start: 20040816, end: 20040825
  2. AVANDAMET [Suspect]
     Indication: DIABETES MELLITUS
     Route: 048
     Dates: start: 20040701, end: 20071225

REACTIONS (3)
  - MYOCARDIAL INFARCTION [None]
  - ATRIOVENTRICULAR BLOCK COMPLETE [None]
  - ATRIAL FIBRILLATION [None]
